FAERS Safety Report 23048628 (Version 1)
Quarter: 2023Q4

REPORT INFORMATION
  Report Type: Spontaneous
  Country: US (occurrence: US)
  Receive Date: 20231010
  Receipt Date: 20231010
  Transmission Date: 20240110
  Serious: No
  Sender: FDA-Public Use
  Company Number: US-JNJFOC-20230933909

PATIENT

DRUGS (2)
  1. SUDAFED [Suspect]
     Active Substance: PSEUDOEPHEDRINE HYDROCHLORIDE
     Indication: Nasal congestion
     Route: 065
  2. SUDAFED [Suspect]
     Active Substance: PSEUDOEPHEDRINE HYDROCHLORIDE
     Indication: Nasopharyngitis

REACTIONS (2)
  - Insomnia [Unknown]
  - Therapeutic product effect incomplete [Unknown]
